FAERS Safety Report 15560157 (Version 2)
Quarter: 2020Q3

REPORT INFORMATION
  Report Type: Report from Study
  Country: US (occurrence: US)
  Receive Date: 20181029
  Receipt Date: 20181106
  Transmission Date: 20201105
  Serious: Yes (Hospitalization)
  Sender: FDA-Public Use
  Company Number: US-ROCHE-1776321

PATIENT
  Age: 52 Year
  Sex: Female
  Weight: 59.24 kg

DRUGS (4)
  1. BENZONATATE. [Concomitant]
     Active Substance: BENZONATATE
     Route: 065
     Dates: start: 20160511
  2. TASELISIB. [Suspect]
     Active Substance: TASELISIB
     Dosage: DATE OF MOST RECENT DOSE PRIOR TO THE EVENT ONSET: 04/JUN/2016 OF 2 MG
     Route: 048
     Dates: start: 20160311, end: 20160604
  3. TRASTUZUMAB EMTANSINE [Suspect]
     Active Substance: ADO-TRASTUZUMAB EMTANSINE
     Dosage: DATE OF MOST RECENT DOSE PRIOR TO THE EVENT ONSET: 02/JUN/2016
     Route: 042
     Dates: start: 20160311, end: 20160602
  4. PROCHLORPERAZINE. [Concomitant]
     Active Substance: PROCHLORPERAZINE
     Route: 065
     Dates: start: 20160311

REACTIONS (2)
  - Radiation oesophagitis [Recovered/Resolved]
  - Pulmonary haemorrhage [Recovered/Resolved]

NARRATIVE: CASE EVENT DATE: 20160605
